FAERS Safety Report 20060022 (Version 1)
Quarter: 2021Q4

REPORT INFORMATION
  Report Type: Report from Study
  Country: GB (occurrence: GB)
  Receive Date: 20211111
  Receipt Date: 20211111
  Transmission Date: 20220304
  Serious: Yes (Other)
  Sender: FDA-Public Use
  Company Number: GB-002147023-NVSC2020GB022293

PATIENT
  Sex: Male

DRUGS (3)
  1. HUMIRA [Suspect]
     Active Substance: ADALIMUMAB
     Indication: Product used for unknown indication
     Route: 058
  2. COSENTYX [Suspect]
     Active Substance: SECUKINUMAB
     Indication: Psoriatic arthropathy
     Dosage: 300 MG, QMO
     Route: 058
  3. COSENTYX [Suspect]
     Active Substance: SECUKINUMAB
     Dosage: 300 MG,QMO
     Route: 065
     Dates: start: 2017

REACTIONS (10)
  - Psoriatic arthropathy [Unknown]
  - Cerebral haemorrhage [Unknown]
  - Peripheral swelling [Unknown]
  - Arthralgia [Unknown]
  - Pain in extremity [Unknown]
  - Tuberculosis [Unknown]
  - Pain [Unknown]
  - Psoriasis [Recovering/Resolving]
  - Aphasia [Unknown]
  - Nasopharyngitis [Recovering/Resolving]
